FAERS Safety Report 9409626 (Version 2)
Quarter: 2013Q4

REPORT INFORMATION
  Report Type: Spontaneous
  Country: FR (occurrence: FR)
  Receive Date: 20130719
  Receipt Date: 20131011
  Transmission Date: 20140711
  Serious: Yes (Other)
  Sender: FDA-Public Use
  Company Number: PHHY2013FR076582

PATIENT
  Age: 10 Year
  Sex: Male

DRUGS (2)
  1. RITALINE LP [Suspect]
     Indication: ATTENTION DEFICIT/HYPERACTIVITY DISORDER
     Dosage: 20 MG, QD
     Route: 048
  2. RITALINE LP [Suspect]
     Indication: OFF LABEL USE

REACTIONS (2)
  - Abnormal behaviour [Recovered/Resolved]
  - Urticaria [Recovered/Resolved]
